FAERS Safety Report 25398732 (Version 4)
Quarter: 2025Q3

REPORT INFORMATION
  Report Type: Spontaneous
  Country: EU (occurrence: EU)
  Receive Date: 20250604
  Receipt Date: 20250716
  Transmission Date: 20251020
  Serious: No
  Sender: ABBVIE
  Company Number: EU-RICHTER-2025-GR-006253

PATIENT
  Age: 31 Year
  Sex: Female

DRUGS (2)
  1. LEVONORGESTREL [Suspect]
     Active Substance: LEVONORGESTREL
     Indication: Product used for unknown indication
     Route: 015
     Dates: start: 20240912, end: 20250419
  2. LEVONORGESTREL [Suspect]
     Active Substance: LEVONORGESTREL
     Route: 015

REACTIONS (4)
  - Maternal exposure during pregnancy [Unknown]
  - Drug ineffective [Unknown]
  - Pregnancy on contraceptive [Unknown]
  - Live birth [Unknown]
